FAERS Safety Report 13966796 (Version 1)
Quarter: 2017Q3

REPORT INFORMATION
  Report Type: Spontaneous
  Country: US (occurrence: US)
  Receive Date: 20170913
  Receipt Date: 20170913
  Transmission Date: 20171128
  Serious: Yes (Death)
  Sender: FDA-Public Use
  Company Number: None

PATIENT
  Sex: Male
  Weight: 76.5 kg

DRUGS (2)
  1. QUELICIN [Suspect]
     Active Substance: SUCCINYLCHOLINE CHLORIDE
     Indication: CORONARY ARTERY BYPASS
     Route: 042
     Dates: start: 20170502
  2. 8.4% SODIUM BICARBONATE INJECTION, USP, 50 ML VIALS [Suspect]
     Active Substance: SODIUM BICARBONATE
     Indication: CORONARY ARTERY BYPASS
     Route: 042
     Dates: start: 20170502

REACTIONS (15)
  - Oedema [None]
  - Dyspnoea [None]
  - Renal failure [None]
  - Fatigue [None]
  - Infection [None]
  - Pulmonary oedema [None]
  - Delirium [None]
  - Atrial fibrillation [None]
  - Pain [None]
  - Pneumonia [None]
  - Hallucination [None]
  - Delusion [None]
  - Asthenia [None]
  - Gait inability [None]
  - Anxiety [None]

NARRATIVE: CASE EVENT DATE: 20170502
